FAERS Safety Report 5835622-4 (Version None)
Quarter: 2008Q3

REPORT INFORMATION
  Report Type: 
  Country: None (occurrence: None)
  Receive Date: 20080730
  Receipt Date: 20080201
  Transmission Date: 20090109
  Serious: Yes (Other)
  Sender: FDA-Public Use
  Company Number: 2008SP002518

PATIENT
  Age: 49 Year
  Sex: Female
  Weight: 85.2762 kg

DRUGS (6)
  1. RIBAVIRIN [Suspect]
     Indication: HEPATITIS C
     Dosage: PO
     Route: 048
     Dates: start: 20070507
  2. PEGASYS [Suspect]
     Indication: HEPATITIS C
     Dates: start: 20070507
  3. PROCRIT [Suspect]
     Indication: ANAEMIA OF CHRONIC DISEASE
     Dosage: 40000 IU; QW; SC, 60000 IU; QW; SC, 80000 IU; QW; SC
     Route: 058
     Dates: start: 20070901, end: 20071128
  4. PROCRIT [Suspect]
     Indication: ANAEMIA OF CHRONIC DISEASE
     Dosage: 40000 IU; QW; SC, 60000 IU; QW; SC, 80000 IU; QW; SC
     Route: 058
     Dates: start: 20070604
  5. PROCRIT [Suspect]
     Indication: ANAEMIA OF CHRONIC DISEASE
     Dosage: 40000 IU; QW; SC, 60000 IU; QW; SC, 80000 IU; QW; SC
     Route: 058
     Dates: start: 20070801
  6. NEUPOGEN [Concomitant]

REACTIONS (2)
  - APLASIA PURE RED CELL [None]
  - DRUG SPECIFIC ANTIBODY ABSENT [None]
